FAERS Safety Report 7677919-1 (Version None)
Quarter: 2011Q3

REPORT INFORMATION
  Report Type: 
  Country: None (occurrence: None)
  Receive Date: 20110811
  Receipt Date: 20110801
  Transmission Date: 20111222
  Serious: Yes (Hospitalization, Other)
  Sender: FDA-Public Use
  Company Number: DE-ALEXION-A201100982

PATIENT
  Sex: Male

DRUGS (7)
  1. BISOPROLOL FUMARATE [Concomitant]
     Dosage: UNK
     Route: 048
  2. DIOVAN [Concomitant]
     Dosage: UNK
     Route: 048
  3. SOLIRIS [Suspect]
     Indication: PAROXYSMAL NOCTURNAL HAEMOGLOBINURIA
     Dosage: 600 MG, UNK
     Route: 042
     Dates: start: 20110601
  4. SOLIRIS [Suspect]
     Dosage: 900 MG, UNK
     Route: 042
  5. SIMVASTATIN [Concomitant]
     Dosage: UNK
     Route: 048
  6. TORSEMIDE [Concomitant]
     Dosage: UNK
     Route: 048
  7. NIFEDIPINE [Concomitant]
     Dosage: UNK
     Route: 048

REACTIONS (1)
  - CEREBROVASCULAR ACCIDENT [None]
